FAERS Safety Report 10071923 (Version 1)
Quarter: 2014Q2

REPORT INFORMATION
  Report Type: Spontaneous
  Country: FR (occurrence: FR)
  Receive Date: 20140411
  Receipt Date: 20140411
  Transmission Date: 20141212
  Serious: Yes (Other)
  Sender: FDA-Public Use
  Company Number: FR-ROCHE-1382305

PATIENT
  Sex: Male

DRUGS (2)
  1. LUCENTIS [Suspect]
     Indication: NEOVASCULARISATION
     Route: 050
  2. LUCENTIS [Suspect]
     Indication: MYOPIA

REACTIONS (1)
  - Infarction [Unknown]
